FAERS Safety Report 4775925-8 (Version None)
Quarter: 2005Q3

REPORT INFORMATION
  Report Type: 
  Country: None (occurrence: None)
  Receive Date: 20050914
  Receipt Date: 20050317
  Transmission Date: 20060218
  Serious: Yes (Hospitalization)
  Sender: FDA-Public Use
  Company Number: 163-20785-05030530

PATIENT
  Age: 53 Year
  Sex: Female

DRUGS (25)
  1. THALOMID [Suspect]
     Indication: MULTIPLE MYELOMA
     Dates: start: 20040721
  2. THALOMID [Suspect]
     Indication: MULTIPLE MYELOMA
     Dates: start: 20040830
  3. VINCRISTINE [Suspect]
     Indication: MULTIPLE MYELOMA
     Dates: start: 20040721
  4. VINCRISTINE [Suspect]
     Indication: MULTIPLE MYELOMA
     Dates: start: 20040830
  5. DEXAMETHASONE [Suspect]
     Indication: MULTIPLE MYELOMA
     Dates: start: 20040721
  6. DEXAMETHASONE [Suspect]
     Indication: MULTIPLE MYELOMA
     Dates: start: 20040830
  7. CISPLATIN [Suspect]
     Indication: MULTIPLE MYELOMA
     Dates: start: 20040721
  8. CISPLATIN [Suspect]
     Indication: MULTIPLE MYELOMA
     Dates: start: 20040830
  9. ADRIAMYCIN PFS [Suspect]
     Indication: MULTIPLE MYELOMA
     Dates: start: 20040721
  10. ADRIAMYCIN PFS [Suspect]
     Indication: MULTIPLE MYELOMA
     Dates: start: 20040830
  11. CYCLOPHOSPHAMIDE [Suspect]
     Indication: MULTIPLE MYELOMA
     Dates: start: 20040721
  12. CYCLOPHOSPHAMIDE [Suspect]
     Indication: MULTIPLE MYELOMA
     Dates: start: 20040830
  13. ETOPOSIDE [Suspect]
     Indication: MULTIPLE MYELOMA
     Dates: start: 20040721
  14. ETOPOSIDE [Suspect]
     Indication: MULTIPLE MYELOMA
     Dates: start: 20040830
  15. MELPHALAN (MELPHALAN) [Suspect]
     Indication: MULTIPLE MYELOMA
     Dosage: 312 MG, INTRAVENOUS
     Route: 042
     Dates: start: 20041013
  16. AREDIA [Concomitant]
  17. ACYCLOVIR [Concomitant]
  18. PROTONIX [Concomitant]
  19. PROCRIT [Concomitant]
  20. FENTANYL (FENTANYL) (POULTICE OR PATCH) [Concomitant]
  21. NIFEREX (POLYSACCHARIDE-IRON COMPLEX) [Concomitant]
  22. MARINOL [Concomitant]
  23. DIFLUCAN [Concomitant]
  24. ZANTAC [Concomitant]
  25. FOLIC ACID [Concomitant]

REACTIONS (13)
  - ASTHENIA [None]
  - CATHETER SITE CELLULITIS [None]
  - COLITIS [None]
  - CYTOMEGALOVIRUS INFECTION [None]
  - DIARRHOEA [None]
  - FEBRILE NEUTROPENIA [None]
  - MUCOSAL INFLAMMATION [None]
  - NAUSEA [None]
  - OESOPHAGITIS [None]
  - PANCYTOPENIA [None]
  - PYREXIA [None]
  - STAPHYLOCOCCAL INFECTION [None]
  - VOMITING [None]
